FAERS Safety Report 11129469 (Version 1)
Quarter: 2015Q2

REPORT INFORMATION
  Report Type: Spontaneous
  Country: RO (occurrence: RO)
  Receive Date: 20150521
  Receipt Date: 20150521
  Transmission Date: 20150821
  Serious: Yes (Life-Threatening)
  Sender: FDA-Public Use
  Company Number: RO-MALLINCKRODT-T201502687

PATIENT
  Age: 56 Year
  Sex: Female

DRUGS (1)
  1. OPTIRAY 350 [Suspect]
     Active Substance: IOVERSOL
     Indication: COMPUTERISED TOMOGRAM
     Dosage: 80 MG, SINGLE
     Route: 042
     Dates: start: 20150511, end: 20150511

REACTIONS (6)
  - Cough [Unknown]
  - Cyanosis [Unknown]
  - Eyelid oedema [Unknown]
  - Rash [Unknown]
  - Choking [Unknown]
  - Laryngeal oedema [Unknown]

NARRATIVE: CASE EVENT DATE: 20150511
